FAERS Safety Report 8201598-8 (Version None)
Quarter: 2012Q1

REPORT INFORMATION
  Report Type: 
  Country: None (occurrence: None)
  Receive Date: 20120308
  Receipt Date: 20120305
  Transmission Date: 20120608
  Serious: Yes (Congenital Anomaly)
  Sender: FDA-Public Use
  Company Number: 2012020256

PATIENT
  Sex: Female

DRUGS (4)
  1. ZOLPIDEM [Suspect]
     Indication: MATERNAL EXPOSURE TIMING UNSPECIFIED
     Dosage: TRANSPLACENTAL
     Route: 064
  2. MYCOPHENOLATE MOFETIL [Suspect]
     Indication: SYSTEMIC LUPUS ERYTHEMATOSUS
     Dosage: TRANSPLACENTAL
     Route: 064
  3. ESCITALOPRAM [Suspect]
     Indication: MATERNAL EXPOSURE TIMING UNSPECIFIED
     Dosage: TRANSPLACENTAL
     Route: 064
  4. LORAZEPAM [Suspect]
     Indication: MATERNAL EXPOSURE TIMING UNSPECIFIED
     Dosage: TRANSPLACENTAL
     Route: 064

REACTIONS (4)
  - MATERNAL DRUGS AFFECTING FOETUS [None]
  - PREMATURE BABY [None]
  - OESOPHAGEAL ATRESIA [None]
  - TRACHEAL ATRESIA [None]
